FAERS Safety Report 12832463 (Version 1)
Quarter: 2016Q4

REPORT INFORMATION
  Report Type: Spontaneous
  Country: FI (occurrence: FI)
  Receive Date: 20161010
  Receipt Date: 20161010
  Transmission Date: 20170207
  Serious: No
  Sender: FDA-Public Use
  Company Number: FI-JAZZ-2016-FI-013672

PATIENT
  Sex: Female

DRUGS (2)
  1. PROVIGIL [Concomitant]
     Active Substance: MODAFINIL
     Dosage: UNK
  2. XYREM [Suspect]
     Active Substance: SODIUM OXYBATE
     Indication: NARCOLEPSY
     Dosage: UNKNOWN DOSE
     Route: 048

REACTIONS (3)
  - Poor quality sleep [Recovered/Resolved]
  - Urinary incontinence [Recovered/Resolved]
  - Headache [Recovered/Resolved]
